FAERS Safety Report 7021438-2 (Version None)
Quarter: 2010Q3

REPORT INFORMATION
  Report Type: 
  Country: None (occurrence: None)
  Receive Date: 20100929
  Receipt Date: 20100924
  Transmission Date: 20110219
  Serious: Yes (Hospitalization)
  Sender: FDA-Public Use
  Company Number: BE-AMGEN-KDC434236

PATIENT
  Sex: Male

DRUGS (6)
  1. PANITUMUMAB [Suspect]
     Indication: COLORECTAL CANCER
     Route: 042
     Dates: start: 20100608
  2. AUGMENTIN '125' [Concomitant]
     Dates: end: 20100803
  3. MINOCYCLINE HCL [Concomitant]
     Route: 048
     Dates: start: 20100622
  4. FOLINIC ACID [Concomitant]
     Dates: start: 20100608
  5. FLUOROURACIL [Concomitant]
     Dates: start: 20100608
  6. OXALIPLATIN [Concomitant]
     Dates: start: 20100608

REACTIONS (1)
  - PNEUMONIA [None]
